FAERS Safety Report 7417583-X (Version None)
Quarter: 2011Q2

REPORT INFORMATION
  Report Type: 
  Country: None (occurrence: None)
  Receive Date: 20110408
  Receipt Date: 20110323
  Transmission Date: 20111010
  Serious: Yes (Hospitalization, Other)
  Sender: FDA-Public Use
  Company Number: 2009S1003283

PATIENT
  Age: 67 Year
  Sex: Female
  Weight: 98.8842 kg

DRUGS (7)
  1. LISINOPRIL AND HYDROCHLOROTHIAZIDE [Concomitant]
  2. GLUCOTROL XL [Concomitant]
  3. PHOSPHOSODA FLAVOR NOT SPECIFIED [Suspect]
     Indication: COLONOSCOPY
     Dosage: 90 ML;TOTAL;PO
     Route: 048
     Dates: start: 20080617, end: 20080617
  4. LANTUS [Concomitant]
  5. FLEEP ENEMA (SODIUM PHOSPHATE) [Suspect]
     Indication: COLONOSCOPY
     Dosage: RTL
     Route: 054
  6. GLUCOPHAGE [Concomitant]
  7. CRESTOR [Concomitant]

REACTIONS (10)
  - PYREXIA [None]
  - FATIGUE [None]
  - ASTHENIA [None]
  - RENAL FAILURE ACUTE [None]
  - PALLOR [None]
  - NAUSEA [None]
  - DIALYSIS [None]
  - NEPHROCALCINOSIS [None]
  - COLD SWEAT [None]
  - URINARY TRACT INFECTION [None]
